FAERS Safety Report 5642625-1 (Version None)
Quarter: 2008Q1

REPORT INFORMATION
  Report Type: 
  Country: None (occurrence: None)
  Receive Date: 20080227
  Receipt Date: 20080227
  Transmission Date: 20080703
  Serious: Yes (Hospitalization)
  Sender: FDA-Public Use
  Company Number: None

PATIENT
  Sex: Female
  Weight: 41.2773 kg

DRUGS (7)
  1. FENTANYL TRANSDERMAL SYSTEM [Suspect]
     Indication: PAIN
     Dosage: CHRONIC PAIN (THERAPY DATES: PRIOR TO ADMISSION)
  2. FENTANYL-100 [Suspect]
     Indication: PAIN
     Dosage: (THERAPY DATES: PRIOR TO ADMISSION)
  3. VALIUM [Suspect]
     Indication: PAIN
     Dosage: (THERAPY DATES: PRIOR TO ADMISSION)
  4. SPIRIVA [Concomitant]
  5. ADVAIR DISKUS 100/50 [Concomitant]
  6. EFFEXOR XR [Concomitant]
  7. SEROQUEL [Concomitant]

REACTIONS (1)
  - CHRONIC OBSTRUCTIVE PULMONARY DISEASE [None]
